FAERS Safety Report 9015726 (Version 1)
Quarter: 2013Q1

REPORT INFORMATION
  Report Type: Spontaneous
  Country: US (occurrence: US)
  Receive Date: 20130116
  Receipt Date: 20130116
  Transmission Date: 20140127
  Serious: Yes (Hospitalization, Other)
  Sender: FDA-Public Use
  Company Number: US-009507513-1301USA003481

PATIENT
  Age: 2 Year
  Sex: Female

DRUGS (4)
  1. MONTELUKAST SODIUM [Suspect]
     Indication: ASTHMA
  2. CORTICOSTEROIDS (UNSPECIFIED) [Suspect]
     Route: 048
  3. FLUTICASONE PROPIONATE (+) SALMETEROL XINAFOATE [Suspect]
     Dosage: RESPIRATORY (INHALATION)
  4. FLUTICASONE [Suspect]
     Dosage: 500 MCG, RESPIRATORY (INHALATION)

REACTIONS (5)
  - Upper respiratory tract infection [Unknown]
  - Hypoglycaemic seizure [Unknown]
  - Gastroenteritis [Unknown]
  - Asthma [Unknown]
  - Adrenal suppression [Unknown]
